FAERS Safety Report 6268965-3 (Version None)
Quarter: 2009Q3

REPORT INFORMATION
  Report Type: 
  Country: None (occurrence: None)
  Receive Date: 20090715
  Receipt Date: 20090714
  Transmission Date: 20100115
  Serious: Yes (Hospitalization)
  Sender: FDA-Public Use
  Company Number: US-ROXANE LABORATORIES, INC.-2009-RO-00696RO

PATIENT
  Sex: Female

DRUGS (1)
  1. MORPHINE [Suspect]

REACTIONS (1)
  - OVERDOSE [None]
